FAERS Safety Report 9822035 (Version 1)
Quarter: 2014Q1

REPORT INFORMATION
  Report Type: Spontaneous
  Country: FR (occurrence: None)
  Receive Date: 20140115
  Receipt Date: 20140115
  Transmission Date: 20141002
  Serious: Yes (Life-Threatening, Hospitalization)
  Sender: FDA-Public Use
  Company Number: PR-AE13-001220

PATIENT
  Age: 31 Year
  Sex: Female

DRUGS (18)
  1. ATRACURIUM BESYLATE [Suspect]
     Indication: ANAESTHESIA
     Route: 042
     Dates: start: 20120108, end: 20120108
  2. CIMETIDINE [Suspect]
     Indication: SPINAL ANAESTHESIA
     Route: 048
     Dates: start: 20120108, end: 20120108
  3. EPHEDRINE [Suspect]
     Indication: SPINAL ANAESTHESIA
     Route: 042
     Dates: start: 20120108, end: 20120108
  4. TRANEXAMIC ACID [Suspect]
     Indication: POSTPARTUM HAEMORRHAGE
     Route: 042
     Dates: start: 20120108, end: 20120108
  5. BUPIVACAINE [Suspect]
     Indication: SPINAL ANAESTHESIA
     Route: 008
     Dates: start: 20120108, end: 20120108
  6. CARBETOCIN [Suspect]
     Indication: UTERINE ATONY
     Route: 042
     Dates: start: 20120108, end: 20120108
  7. CEPHAZOLIN [Suspect]
     Indication: ANTIBIOTIC PROPHYLAXIS
     Route: 042
     Dates: start: 20120108, end: 20120108
  8. FIBRINOGEN [Suspect]
     Indication: THIRD STAGE POSTPARTUM HAEMORRHAGE
     Route: 042
     Dates: start: 20120108, end: 20120108
  9. COAGULATION FACTOR VII HUMAN [Suspect]
     Indication: THIRD STAGE POSTPARTUM HAEMORRHAGE
     Route: 042
     Dates: start: 20120108, end: 20120108
  10. SULPROSTONE [Suspect]
     Indication: UTERINE ATONY
     Route: 042
     Dates: start: 20120108, end: 20120108
  11. SEVOFLURANE [Suspect]
     Indication: ANAESTHESIA
     Dosage: 1 ML / UNK / INHALED
     Route: 055
     Dates: start: 20120108, end: 20120108
  12. SUXAMETHONIUM [Suspect]
     Indication: ENDOTRACHEAL INTUBATION
     Route: 042
     Dates: start: 20120108, end: 20120108
  13. PHENYLEPHRINE HCL [Suspect]
     Indication: PRODUCT USED FOR UNKNOWN INDICATION
     Dates: start: 20120108, end: 20120108
  14. SUFENTANIL CITRATE [Suspect]
     Indication: PRODUCT USED FOR UNKNOWN INDICATION
     Dosage: 2.5 MCG / UNK /  UNKNOWN
     Dates: start: 20120108, end: 20120108
  15. PROPOFOL [Suspect]
     Indication: ANAESTHESIA
     Route: 042
     Dates: start: 20120108
  16. ETOMIDATE [Suspect]
     Dates: start: 20120108, end: 20120108
  17. PLASMAFUSION HES [Concomitant]
  18. LACTATED RINGER^S INJ. [Concomitant]

REACTIONS (13)
  - Renal failure acute [None]
  - Uterine atony [None]
  - Postpartum haemorrhage [None]
  - Placenta accreta [None]
  - Coagulopathy [None]
  - Shock haemorrhagic [None]
  - Oedema peripheral [None]
  - Abdominal distension [None]
  - Respiratory failure [None]
  - Anaemia [None]
  - Thrombocytopenia [None]
  - Pyrexia [None]
  - Renal tubular necrosis [None]
